FAERS Safety Report 8846447 (Version 1)
Quarter: 2012Q4

REPORT INFORMATION
  Report Type: 
  Country: ES (occurrence: ES)
  Receive Date: 20121017
  Receipt Date: 20121017
  Transmission Date: 20130627
  Serious: Yes (Other)
  Sender: FDA-Public Use
  Company Number: ES-BAYER-2012-108717

PATIENT
  Age: 23 Year
  Sex: Female

DRUGS (2)
  1. GADOVIST [Suspect]
     Indication: NUCLEAR MAGNETIC RESONANCE IMAGING BRAIN
     Dosage: 4 ml, ONCE
     Dates: start: 20121004, end: 20121004
  2. GADOVIST [Suspect]
     Indication: BLOOD PROLACTIN INCREASED

REACTIONS (5)
  - Eyelid oedema [Recovered/Resolved]
  - Hypoaesthesia oral [Recovered/Resolved]
  - Lip oedema [Not Recovered/Not Resolved]
  - Urticaria [Recovered/Resolved]
  - Facial paresis [Not Recovered/Not Resolved]
